FAERS Safety Report 4642182-2 (Version None)
Quarter: 2005Q2

REPORT INFORMATION
  Report Type: 
  Country: None (occurrence: None)
  Receive Date: 20050421
  Receipt Date: 20050310
  Transmission Date: 20051028
  Serious: Yes (Other)
  Sender: FDA-Public Use
  Company Number: 2005S1001241

PATIENT
  Age: 65 Year
  Sex: Female

DRUGS (8)
  1. FENTANYL [Suspect]
     Indication: PAIN
     Dosage: 100 MCG/HR; TDER
     Route: 062
     Dates: start: 20050302
  2. FENTANYL [Suspect]
     Indication: PAIN
     Dosage: 25 MCG/HR; TDER
     Route: 062
     Dates: start: 20050302
  3. WARFARIN SODIUM [Concomitant]
  4. LEVOTHYROXINE SODIUM [Concomitant]
  5. ATORVASTATIN CALCIUM [Concomitant]
  6. PAROXETINE HCL [Concomitant]
  7. HYDROCHLORIDE [Concomitant]
  8. OXYCODONE HCL [Concomitant]

REACTIONS (1)
  - PHARMACEUTICAL PRODUCT COMPLAINT [None]
